FAERS Safety Report 10748332 (Version 2)
Quarter: 2015Q2

REPORT INFORMATION
  Report Type: Spontaneous
  Country: US (occurrence: None)
  Receive Date: 20150120
  Receipt Date: 20150420
  Transmission Date: 20150821
  Serious: No
  Sender: FDA-Public Use
  Company Number: AEGR000863

PATIENT
  Age: 64 Year
  Sex: Male
  Weight: 95.2 kg

DRUGS (10)
  1. IMDUR (ISOSORBIDE MONONITRATE) [Concomitant]
  2. AMLODIPINE BESYLATE. [Concomitant]
     Active Substance: AMLODIPINE BESYLATE
  3. VITAMIN E (TOCOPHERYL ACETATE) [Concomitant]
  4. METOPROLOL SUCCINATE. [Concomitant]
     Active Substance: METOPROLOL SUCCINATE
  5. LIVALO (PITAVASTATIN CALCIUM) [Concomitant]
  6. OMEGA 3 6 9 (OMEGA 9 FATTY ACIDS, OMEGA 3-FATTY ACIDS, OMEGA-6 FATTY ACIDS) [Concomitant]
  7. JUXTAPID [Suspect]
     Active Substance: LOMITAPIDE MESYLATE
     Indication: TYPE IIA HYPERLIPIDAEMIA
     Route: 048
     Dates: start: 20141023
  8. PANTOPRAZOLE (PANTOPRAZOLE SODIUM SESQUIHYDRATE) [Concomitant]
  9. NAPROXEN (NAPROXEN SODIUM) [Concomitant]
  10. CLOPIDOGREL BISULFATE. [Concomitant]
     Active Substance: CLOPIDOGREL BISULFATE

REACTIONS (5)
  - Flatulence [None]
  - Fatigue [None]
  - Weight decreased [None]
  - Constipation [None]
  - Nausea [None]

NARRATIVE: CASE EVENT DATE: 201410
